FAERS Safety Report 8619933-5 (Version None)
Quarter: 2012Q3

REPORT INFORMATION
  Report Type: 
  Country: None (occurrence: None)
  Receive Date: 20120817
  Receipt Date: 20120817
  Transmission Date: 20120928
  Serious: Yes (Hospitalization)
  Sender: FDA-Public Use
  Company Number: None

PATIENT
  Sex: Female
  Weight: 122.4712 kg

DRUGS (13)
  1. SPIRONOLACTONE [Concomitant]
  2. PEPCID [Concomitant]
  3. LAMICTAL [Concomitant]
  4. MYCOPHENOLATE MOFETIL (CELLCEPT) [Concomitant]
  5. NORTRIPTYLINE [Concomitant]
  6. GAMMAGARD LIQUID [Suspect]
     Indication: MYASTHENIA GRAVIS
     Dosage: 50GM DAILY X 5 DAYS IV
     Route: 042
     Dates: start: 20120802, end: 20120805
  7. MESTINON [Concomitant]
  8. DIASZPAM [Concomitant]
  9. NALTREXONE HYDROCHLORIDE [Concomitant]
  10. METFORMIN HCL [Concomitant]
  11. SEROQUEL XR [Concomitant]
  12. TRAMADOL HCL [Concomitant]
  13. ATENOLOL [Concomitant]

REACTIONS (9)
  - PALPITATIONS [None]
  - NAUSEA [None]
  - HEADACHE [None]
  - FLUSHING [None]
  - VISION BLURRED [None]
  - HYPERHIDROSIS [None]
  - EYE SWELLING [None]
  - NECK PAIN [None]
  - COLD SWEAT [None]
